FAERS Safety Report 7990876-3 (Version None)
Quarter: 2011Q4

REPORT INFORMATION
  Report Type: 
  Country: None (occurrence: None)
  Receive Date: 20111219
  Receipt Date: 20111124
  Transmission Date: 20120403
  Serious: Yes (Death, Hospitalization)
  Sender: FDA-Public Use
  Company Number: DK-ROCHE-1016197

PATIENT
  Sex: Female

DRUGS (30)
  1. CYCLOPHOSPHAMIDE [Suspect]
     Indication: DIFFUSE LARGE B-CELL LYMPHOMA
     Dosage: LAST DOSE PRIOR TO SAE: 13-SEP-2011
     Route: 042
     Dates: start: 20110707
  2. DOXORUBICIN HCL [Suspect]
     Indication: DIFFUSE LARGE B-CELL LYMPHOMA
     Dosage: LAST DOSE PRIOR TO SAE: 13-SEP-2011
     Route: 042
     Dates: start: 20110707
  3. BACTRIM [Concomitant]
     Dates: start: 20111121
  4. MABTHERA [Suspect]
     Indication: DIFFUSE LARGE B-CELL LYMPHOMA
     Dosage: LAST DOSE PRIOR TO SAE: 13-OCT-2011
     Route: 042
     Dates: start: 20110706
  5. PAMOL [Concomitant]
     Dosage: LAST DOSE: 17-NOV-2011
     Route: 048
     Dates: start: 20110616
  6. DIGOXIN [Concomitant]
     Dosage: LAST DOSE: 17-NOV-2011
     Route: 048
     Dates: start: 20111117
  7. POTASSIUM CHLORIDE [Concomitant]
     Dosage: LAST DOSE: 20-NOV-2011
     Route: 048
     Dates: start: 20111118
  8. KONAKION [Concomitant]
     Dosage: LAST DOSE: 20-NOV-2011
     Route: 048
     Dates: start: 20111121
  9. LANSOPRAZOLE [Concomitant]
     Dosage: LAST DOSE: 17-NOV-2011
     Route: 048
     Dates: start: 20110531
  10. ALLOPURINOL [Concomitant]
     Dosage: LAST DOSE: 17-NOV-2011
     Route: 048
     Dates: start: 20110628
  11. CIPROFLOXACIN [Concomitant]
     Dosage: LAST DOSE: 21-NOV-2011
     Route: 042
     Dates: start: 20111120
  12. CORDANUM [Concomitant]
     Dosage: LAST DOSE: 18-NOV-2011
     Route: 048
     Dates: start: 20111118
  13. RESONIUM CALCIUM [Concomitant]
     Dosage: LAST DOSE: 23-NOV-2011
     Route: 048
     Dates: start: 20111122
  14. CEFUROXIME [Concomitant]
     Dosage: LAST DOSE: 19-NOV-2011
     Route: 042
     Dates: start: 20111117
  15. PREDNISOLONE [Concomitant]
     Dosage: LAST DOSE: 21-NOV-2011
     Route: 048
     Dates: start: 20111118
  16. ACTILAX [Concomitant]
     Dosage: LAST DOSE: 17-NOV-2011
     Route: 048
     Dates: start: 20110718
  17. ACTILAX [Concomitant]
     Route: 048
     Dates: start: 20111120
  18. BACTRIM [Concomitant]
     Dosage: 400/10 MG, LAST DOSE: 17-NOV-2011
     Route: 048
     Dates: start: 20110702
  19. ACYCLOVIR [Concomitant]
     Dosage: LAST DOSE: 17-NOV-2011
     Route: 048
     Dates: start: 20110702
  20. FUROSEMIDE [Concomitant]
     Dosage: 8ML/80 MG
     Route: 042
     Dates: start: 20111119
  21. METRONIDAZOLE [Concomitant]
     Dosage: LAST DOSE: 23-NOV-2011
     Route: 042
     Dates: start: 20111120
  22. PREDNISONE TAB [Suspect]
     Indication: DIFFUSE LARGE B-CELL LYMPHOMA
     Dosage: LAST DOSE PRIOR TO SAE: 13-SEP-2011
     Route: 048
     Dates: start: 20110707
  23. VINCRISTINE [Suspect]
     Indication: DIFFUSE LARGE B-CELL LYMPHOMA
     Dosage: LAST DOSE PRIOR TO SAE: 13-SEP-2011
     Route: 042
     Dates: start: 20110707
  24. GRANULOCYTE COLONY STIMULATING FACTOR NOS [Suspect]
     Indication: DIFFUSE LARGE B-CELL LYMPHOMA
     Dosage: LAST DOSE: 15-SEP-2011
     Route: 058
     Dates: start: 20110707
  25. PANTOPRAZOLE SODIUM [Concomitant]
     Dosage: LAST DOSE: 17-NOV-2011
     Route: 048
  26. CORDARONE [Concomitant]
     Dosage: LAST DOSE: 18-NOV-2011
     Route: 048
     Dates: start: 20111118
  27. FRAGMIN [Concomitant]
     Dosage: LAST DOSE: 20-NOV-2011
     Route: 058
     Dates: start: 20111120
  28. FUROSEMIDE [Concomitant]
     Dosage: LAST DOSE: 19-NOV-2011
     Route: 048
     Dates: start: 20111118
  29. AVELOX [Concomitant]
     Dosage: LAST DOSE: 20-NOV-2011
     Route: 042
     Dates: start: 20111119
  30. SOLU-MEDROL [Concomitant]
     Dosage: LAST DOSE: 23-NOV-2011
     Route: 042
     Dates: start: 20111121

REACTIONS (1)
  - SEPTIC SHOCK [None]
